FAERS Safety Report 6973868-2 (Version None)
Quarter: 2010Q3

REPORT INFORMATION
  Report Type: 
  Country: None (occurrence: None)
  Receive Date: 20100909
  Receipt Date: 20100830
  Transmission Date: 20110219
  Serious: Yes (Other)
  Sender: FDA-Public Use
  Company Number: B0673310A

PATIENT
  Sex: Female

DRUGS (2)
  1. TYVERB [Suspect]
     Dosage: 1250MG PER DAY
     Route: 048
  2. CAPECITABINE [Concomitant]
     Dosage: 200MGM2 TWICE PER DAY
     Route: 065

REACTIONS (1)
  - PLEURAL EFFUSION [None]
